FAERS Safety Report 14935184 (Version 4)
Quarter: 2018Q3

REPORT INFORMATION
  Report Type: Report from Study
  Country: None (occurrence: CN)
  Receive Date: 20180524
  Receipt Date: 20180730
  Transmission Date: 20181010
  Serious: Yes (Hospitalization)
  Sender: FDA-Public Use
  Company Number: CN-ABBVIE-18P-035-2358050-00

PATIENT
  Age: 33 Year
  Sex: Female
  Weight: 57.5 kg

DRUGS (25)
  1. 0.9% SODIUM CHLORIDE + SODIUM BICARBONATE [Concomitant]
     Indication: PROPHYLAXIS
     Route: 050
     Dates: start: 20180503, end: 20180503
  2. GLUCOSE AND SODIUM CHLORIDE [Concomitant]
     Route: 050
     Dates: start: 20180525, end: 20180528
  3. ALLOPURINOL. [Concomitant]
     Active Substance: ALLOPURINOL
     Route: 048
     Dates: start: 20180518, end: 20180531
  4. GLUCOSE AND SODIUM CHLORIDE [Concomitant]
     Route: 050
     Dates: start: 20180511, end: 20180524
  5. VENETOCLAX. [Suspect]
     Active Substance: VENETOCLAX
     Route: 048
     Dates: start: 20180522, end: 20180528
  6. VENETOCLAX. [Suspect]
     Active Substance: VENETOCLAX
     Route: 048
     Dates: start: 20180529
  7. 0.9% SODIUM CHLORIDE + SODIUM BICARBONATE [Concomitant]
     Route: 050
     Dates: start: 20180504, end: 20180507
  8. GLUCOSE [Concomitant]
     Active Substance: DEXTROSE
     Route: 050
     Dates: start: 20180509, end: 20180524
  9. VENETOCLAX. [Suspect]
     Active Substance: VENETOCLAX
     Route: 048
     Dates: start: 20180514, end: 20180521
  10. 0.9% SODIUM CHLORIDE + SODIUM BICARBONATE [Concomitant]
     Route: 050
     Dates: start: 20180510, end: 20180527
  11. LANTHANUM CARBONATE. [Concomitant]
     Active Substance: LANTHANUM CARBONATE
     Indication: BLOOD PHOSPHORUS INCREASED
     Route: 048
     Dates: start: 20180510, end: 20180517
  12. ALLOPURINOL. [Concomitant]
     Active Substance: ALLOPURINOL
     Indication: PROPHYLAXIS
     Route: 048
     Dates: start: 20180502, end: 20180510
  13. GLUCOSE AND SODIUM CHLORIDE [Concomitant]
     Indication: PROPHYLAXIS
     Route: 050
     Dates: start: 20180508, end: 20180509
  14. DIMETHICONE. [Concomitant]
     Active Substance: DIMETHICONE
     Indication: ABDOMINAL DISTENSION
     Route: 048
  15. HUMAN THROMBOPOIETIN NEEDLE [Concomitant]
     Indication: PLATELET COUNT DECREASED
     Route: 058
     Dates: start: 20180507, end: 20180527
  16. DESOGESTREL AND ETHINYLESTRADIOL [Concomitant]
     Indication: VAGINAL HAEMORRHAGE
     Route: 048
     Dates: start: 20180511
  17. DESOGESTREL AND ETHINYLESTRADIOL [Concomitant]
     Indication: MENSTRUATION DELAYED
  18. GRANULOCYTE COLONY STIMULATING FACTOR [Concomitant]
     Active Substance: GRANULOCYTE COLONY-STIMULATING FACTOR NOS
     Indication: NEUTROPHIL COUNT DECREASED
     Route: 058
     Dates: start: 20180506, end: 20180512
  19. FEBUXOSTAT. [Concomitant]
     Active Substance: FEBUXOSTAT
     Indication: PROPHYLAXIS
     Route: 048
     Dates: start: 20180510, end: 20180517
  20. GLUCOSE [Concomitant]
     Active Substance: DEXTROSE
     Indication: PROPHYLAXIS
     Route: 050
     Dates: start: 20180507, end: 20180508
  21. GLUCOSE AND SODIUM CHLORIDE [Concomitant]
     Route: 050
     Dates: start: 20180510, end: 20180510
  22. INSULIN INJECTION [Concomitant]
     Active Substance: INSULIN NOS
     Indication: PROPHYLAXIS
     Dosage: 10 U
     Route: 041
     Dates: start: 20180509, end: 20180524
  23. KETOSTERIL [Concomitant]
     Active Substance: AMINO ACIDS
     Indication: RENAL IMPAIRMENT
     Route: 048
     Dates: start: 20180511, end: 20180517
  24. VENETOCLAX. [Suspect]
     Active Substance: VENETOCLAX
     Indication: CHRONIC LYMPHOCYTIC LEUKAEMIA
     Route: 048
     Dates: start: 20180507, end: 20180513
  25. 0.9% SODIUM CHLORIDE + SODIUM BICARBONATE [Concomitant]
     Route: 050
     Dates: start: 20180508, end: 20180509

REACTIONS (1)
  - Bone marrow failure [Recovered/Resolved]

NARRATIVE: CASE EVENT DATE: 20180516
